FAERS Safety Report 5031486-X (Version None)
Quarter: 2006Q2

REPORT INFORMATION
  Report Type: 
  Country: None (occurrence: None)
  Receive Date: 20060616
  Receipt Date: 20060605
  Transmission Date: 20061013
  Serious: Yes (Life-Threatening, Other)
  Sender: FDA-Public Use
  Company Number: TRP_0784_2006

PATIENT
  Age: 58 Year
  Sex: Male
  Weight: 92.9874 kg

DRUGS (9)
  1. RIBASPHERE [Suspect]
     Indication: HEPATITIS C
     Dosage: 600 MG BID PO
     Route: 048
     Dates: start: 20050110, end: 20050419
  2. PEG-INTRON [Suspect]
     Indication: HEPATITIS C
     Dosage: 150 MCG QWK SC
     Route: 058
     Dates: start: 20050110, end: 20050413
  3. RIBASPHERE [Suspect]
     Indication: HEPATITIS C
     Dosage: 600 MG QDAY PO
     Route: 048
     Dates: start: 20050420, end: 20050612
  4. PEG-INTRON [Suspect]
     Indication: HEPATITIS C
     Dosage: 75 MCG QWK SC
     Route: 058
     Dates: start: 20050420, end: 20050606
  5. RIBASPHERE [Suspect]
     Indication: HEPATITIS C
     Dosage: 600 MG BID PO
     Route: 048
     Dates: start: 20050613, end: 20050718
  6. PEG-INTERFERON ALFA-2B/SCHERING-PLOUGH / INJECTABLE POWDER [Suspect]
     Indication: HEPATITIS C
     Dosage: 150 MCG QWK SC
     Route: 058
     Dates: start: 20050613, end: 20050628
  7. PEG-INTRON [Suspect]
     Indication: HEPATITIS C
     Dosage: 75 MCG ONCE SC
     Route: 058
     Dates: start: 20050705, end: 20050705
  8. ASPIRIN [Concomitant]
  9. CENTRUM SILVER [Concomitant]

REACTIONS (12)
  - ANAEMIA [None]
  - GENERAL PHYSICAL HEALTH DETERIORATION [None]
  - HYPERTENSION [None]
  - HYPOTHYROIDISM [None]
  - LEUKOPENIA [None]
  - MALAISE [None]
  - MIDDLE INSOMNIA [None]
  - MORBID THOUGHTS [None]
  - MYOCARDIAL INFARCTION [None]
  - NEUTROPENIA [None]
  - PALLOR [None]
  - RASH [None]
